FAERS Safety Report 4984787-5 (Version None)
Quarter: 2006Q2

REPORT INFORMATION
  Report Type: 
  Country: None (occurrence: None)
  Receive Date: 20060427
  Receipt Date: 20051116
  Transmission Date: 20061013
  Serious: Yes (Hospitalization)
  Sender: FDA-Public Use
  Company Number: BR-SANOFI-SYNTHELABO-F01200502444

PATIENT
  Sex: Female

DRUGS (6)
  1. OXALIPLATIN [Suspect]
     Indication: COLON CANCER
     Dosage: 85 MG/M2 1 X PER 2 WEEK
     Route: 042
  2. FLUOROURACIL [Suspect]
     Indication: COLON CANCER
     Dosage: 1000 MG/M2 1 X PER 2 WEEK
     Route: 042
  3. LEUCOVORIN [Suspect]
     Indication: COLON CANCER
     Dosage: 200MG/M2 1 X PER 2 WEEK
     Route: 042
  4. ACETAMINOPHEN [Concomitant]
     Dosage: UNK
     Route: 065
     Dates: start: 20051104, end: 20051107
  5. METOCLOPRAMIDE [Concomitant]
     Dosage: UNK
     Route: 065
     Dates: start: 20051104, end: 20051104
  6. HEPARIN SODIUM [Concomitant]
     Dosage: UNK
     Route: 065
     Dates: start: 20051104, end: 20051107

REACTIONS (5)
  - BLOOD POTASSIUM DECREASED [None]
  - NEUTROPENIA [None]
  - PLATELET COUNT DECREASED [None]
  - VAGINAL HAEMORRHAGE [None]
  - WHITE BLOOD CELL COUNT DECREASED [None]
